FAERS Safety Report 24967745 (Version 1)
Quarter: 2025Q1

REPORT INFORMATION
  Report Type: Spontaneous
  Country: US (occurrence: US)
  Receive Date: 20250214
  Receipt Date: 20250214
  Transmission Date: 20250409
  Serious: No
  Sender: AUROBINDO
  Company Number: US-AUROBINDO-AUR-APL-2024-059948

PATIENT
  Age: 49 Year
  Sex: Male
  Weight: 95.25 kg

DRUGS (1)
  1. TESTOSTERONE CYPIONATE [Suspect]
     Active Substance: TESTOSTERONE CYPIONATE
     Indication: Androgen deficiency
     Route: 030
     Dates: start: 20241008

REACTIONS (4)
  - Pain [Unknown]
  - Anxiety [Unknown]
  - Depression [Unknown]
  - Abdominal pain upper [Unknown]

NARRATIVE: CASE EVENT DATE: 20241008
